FAERS Safety Report 26181051 (Version 2)
Quarter: 2025Q4

REPORT INFORMATION
  Report Type: Spontaneous
  Country: GB (occurrence: GB)
  Receive Date: 20251221
  Receipt Date: 20251222
  Transmission Date: 20260118
  Serious: Yes (Hospitalization, Other)
  Sender: SANDOZ
  Company Number: None

PATIENT
  Age: 62 Year
  Sex: Female

DRUGS (21)
  1. AMLODIPINE [Suspect]
     Active Substance: AMLODIPINE BESYLATE
     Indication: Product used for unknown indication
     Dosage: 10 MG
  2. FLUDROCORTISONE [Suspect]
     Active Substance: FLUDROCORTISONE
     Indication: Product used for unknown indication
     Dosage: HALF A TABLET TO BE TAKEN EACH DAY
  3. AZELASTINE [Concomitant]
     Active Substance: AZELASTINE
     Indication: Product used for unknown indication
     Dosage: 137 MICROGRAMS / DOSE NASAL SPRAYONE SPRAY TO BE USED IN EACH NOSTRIL TWICE A DAY 1 X 120 DOSE
  4. ATORVASTATIN [Concomitant]
     Active Substance: ATORVASTATIN
     Indication: Product used for unknown indication
     Dosage: 20 MG, QD, TO BE TAKEN EACH NIGHT.
  5. ARANESP [Concomitant]
     Active Substance: DARBEPOETIN ALFA
     Indication: Product used for unknown indication
     Dosage: 80 MICROGRAMS / 0.4 ML SOLUTION FOR INJECTION PRE-FILLED SYRINGES 80 MCG EVERY 14 DAYS AS PER TTO 30 / 06 / 25 0.01 PRE-FILLED DISPOSABLE INJECTION SUPPORTING INFORMATION: [MESSAGE TO PHARMACY: NEXT DOSE WAS DUE 02 / 07 / 25 ] - HAD LAST WEEK ON TUESDAY. STATES SELF ADMINISTERS.
  6. CHOLECALCIFEROL [Concomitant]
     Active Substance: CHOLECALCIFEROL
     Indication: Product used for unknown indication
     Dosage: 1.5 G CHEWABLE TABLETS CHEW OR SUCK ONE TABLET TWICE A DAY
  7. OLIVE OIL [Concomitant]
     Active Substance: OLIVE OIL
     Indication: Product used for unknown indication
     Dosage: APPLY TO LEFT EAR TWICE A DAY FOR AT LEAST 10 DAYS 10 ML -
  8. FLUTICASONE [Concomitant]
     Active Substance: FLUTICASONE
     Indication: Product used for unknown indication
  9. CINNARIZINE [Concomitant]
     Active Substance: CINNARIZINE
     Indication: Product used for unknown indication
     Dosage: 15 MG TABLETS TWO TO BE TAKEN THREE TIMES A DAY 84 TABLET -NOT SURE
  10. BETAHISTINE [Concomitant]
     Active Substance: BETAHISTINE
     Indication: Product used for unknown indication
     Dosage: 16 MG TABLETS TAKE ONE TABLET THREE TIMES A DAY 30 TABLET
  11. ACETAMINOPHEN [Concomitant]
     Active Substance: ACETAMINOPHEN
     Indication: Product used for unknown indication
     Dosage: 500 MG TABLETS ONE TABLET TO BE TAKEN EVERY 4-6 HOURS UP TO FOUR TIMES A DAY
  12. DERMOL [Concomitant]
     Active Substance: BENZALKONIUM CHLORIDE\CHLORHEXIDINE HYDROCHLORIDE\ISOPROPYL MYRISTATE\PARAFFIN
     Indication: Product used for unknown indication
     Dosage: APPLY TO SKIN OR USE AS A SOAP SUBSTITUTE
  13. TRESIBA [Concomitant]
     Active Substance: INSULIN DEGLUDEC
     Indication: Product used for unknown indication
     Dosage: 200 UNITS / ML SOLUTION FOR INJECTION 3 ML PRE-FILLED PENS FOR SUBCUTANEOUS INJECTION, ACCORDING TO REQUIREMENTS - 8 UNITS ON - USUALLY 10PM
  14. INSULIN ASPART [Concomitant]
     Active Substance: INSULIN ASPART
     Indication: Product used for unknown indication
     Dosage: 100 UNITS / ML SOLUTION FOR INJECTION 3 ML PRE-FILLED SOLOSTAR PENS FOR SUBCUTANEOUSINJECTION, ACCORDING TO REQUIREMENTS - 2 UNITS OM, 2 UNITS, AT LUNCH, 2 UNITS AT TEATIME ON TTO
  15. FAMOTIDINE [Concomitant]
     Active Substance: FAMOTIDINE
     Indication: Product used for unknown indication
     Dosage: 20 MG TABLETS ONE TO BE TAKEN TWICE A DAY
  16. ENSURE [Concomitant]
     Active Substance: AMINO ACIDS\DEXTROSE\ELECTROLYTES NOS\SOYBEAN OIL\VITAMINS
     Indication: Product used for unknown indication
     Dosage: TAKE THE CONTENTS OF ONE BOTTLE THREE TIMES A DAY
  17. SENNA [Concomitant]
     Active Substance: SENNOSIDES
     Indication: Product used for unknown indication
     Dosage: 7.5 MG TABLETS TAKE TWO TABLETS AT NIGHT
  18. SODIUM BICARBONATE [Concomitant]
     Active Substance: SODIUM BICARBONATE
     Indication: Product used for unknown indication
     Dosage: 500 MG CAPSULES ONE CAPSULE TO BE TAKEN TWICE A DAY
  19. FEXOFENADINE [Concomitant]
     Active Substance: FEXOFENADINE HYDROCHLORIDE
     Indication: Product used for unknown indication
     Dosage: 180 MG TABLETS ONE TO BE TAKEN EACH DAY
  20. DOCUSATE SODIUM [Concomitant]
     Active Substance: DOCUSATE SODIUM
     Indication: Product used for unknown indication
     Dosage: 100 MG CAPSULES TWO TABLETS TWICE A DAY
  21. LEVETIRACETAM [Concomitant]
     Active Substance: LEVETIRACETAM
     Indication: Product used for unknown indication
     Dosage: 500 MG TABLETS ONE TO BE TAKEN TWICE A DAY

REACTIONS (2)
  - Oedema peripheral [Unknown]
  - Swelling face [Unknown]
